FAERS Safety Report 17689301 (Version 1)
Quarter: 2020Q2

REPORT INFORMATION
  Report Type: Spontaneous
  Country: US (occurrence: US)
  Receive Date: 20200420
  Receipt Date: 20200420
  Transmission Date: 20200714
  Serious: Yes (Hospitalization)
  Sender: FDA-Public Use
  Company Number: None

PATIENT
  Age: 74 Year
  Sex: Male
  Weight: 128.37 kg

DRUGS (2)
  1. APIXABAN (APIXABAN 5MG TAB) [Suspect]
     Active Substance: APIXABAN
     Indication: PULMONARY EMBOLISM
     Route: 048
     Dates: start: 20191230
  2. APIXABAN (APIXABAN 5MG TAB) [Suspect]
     Active Substance: APIXABAN
     Indication: ATRIAL FIBRILLATION
     Route: 048
     Dates: start: 20191230

REACTIONS (8)
  - Hypotension [None]
  - Lethargy [None]
  - Syncope [None]
  - Hypovolaemia [None]
  - Hypokalaemia [None]
  - Hypomagnesaemia [None]
  - Chest pain [None]
  - Transient ischaemic attack [None]

NARRATIVE: CASE EVENT DATE: 20200404
